FAERS Safety Report 5122801-7 (Version None)
Quarter: 2006Q4

REPORT INFORMATION
  Report Type: 
  Country: None (occurrence: None)
  Receive Date: 20061009
  Receipt Date: 20060926
  Transmission Date: 20070319
  Serious: Yes (Death)
  Sender: FDA-Public Use
  Company Number: US-BRISTOL-MYERS SQUIBB COMPANY-13522511

PATIENT
  Sex: Female

DRUGS (2)
  1. COUMADIN [Suspect]
     Dosage: 1MG,TAKEN 3 DAILY.
  2. COUMADIN [Suspect]
     Dosage: 4 MG,TAKEN 2 DAILY

REACTIONS (1)
  - DEATH [None]
